FAERS Safety Report 6793357-8 (Version None)
Quarter: 2010Q2

REPORT INFORMATION
  Report Type: 
  Country: None (occurrence: None)
  Receive Date: 20100624
  Receipt Date: 20100111
  Transmission Date: 20101027
  Serious: Yes (Death)
  Sender: FDA-Public Use
  Company Number: US-MYLANLABS-2009S1021939

PATIENT
  Age: 58 Year
  Sex: Female
  Weight: 157.26 kg

DRUGS (10)
  1. CLOZAPINE [Suspect]
     Route: 048
  2. CLOZAPINE [Suspect]
     Route: 048
  3. CLOZAPINE [Suspect]
     Route: 048
  4. CLONAZEPAM [Concomitant]
     Route: 048
  5. LEXAPRO [Concomitant]
     Route: 048
  6. REQUIP [Concomitant]
     Route: 048
  7. RISPERIDONE [Concomitant]
     Dosage: BID PRN
     Route: 048
  8. ABILIFY [Concomitant]
     Route: 048
  9. DEPAKOTE ER [Concomitant]
     Route: 048
  10. DEPAKOTE [Concomitant]
     Route: 048

REACTIONS (2)
  - SEPSIS [None]
  - URINARY TRACT INFECTION [None]
